FAERS Safety Report 13959522 (Version 2)
Quarter: 2017Q3

REPORT INFORMATION
  Report Type: Spontaneous
  Country: GB (occurrence: GB)
  Receive Date: 20170912
  Receipt Date: 20170912
  Transmission Date: 20171128
  Serious: Yes (Hospitalization)
  Sender: FDA-Public Use
  Company Number: GB-CIPLA LTD.-2017GB16132

PATIENT

DRUGS (5)
  1. LOSARTAN [Concomitant]
     Dosage: UNK
     Route: 065
  2. BISOPROLOL [Concomitant]
     Active Substance: BISOPROLOL
     Dosage: UNK
     Route: 065
  3. AMLODIPINE [Suspect]
     Active Substance: AMLODIPINE BESYLATE
     Indication: HYPERTENSION
     Dosage: 10 MG, UNK
     Route: 048
     Dates: end: 20170817
  4. ATORVASTATIN CALCIUM [Concomitant]
     Dosage: UNK
     Route: 065
  5. ASPIRIN [Concomitant]
     Dosage: UNK
     Route: 065

REACTIONS (2)
  - Fluid overload [Unknown]
  - Oedema peripheral [Recovering/Resolving]
